FAERS Safety Report 15282069 (Version 1)
Quarter: 2018Q3

REPORT INFORMATION
  Report Type: Spontaneous
  Country: IT (occurrence: IT)
  Receive Date: 20180815
  Receipt Date: 20180815
  Transmission Date: 20181010
  Serious: Yes (Hospitalization)
  Sender: FDA-Public Use
  Company Number: IT-ANIPHARMA-2018-IT-000082

PATIENT
  Age: 90 Year
  Sex: Female

DRUGS (1)
  1. CANDESARTAN HCT [Suspect]
     Active Substance: CANDESARTAN CILEXETIL\HYDROCHLOROTHIAZIDE
     Indication: HYPERTENSION
     Dosage: EVERY DAY
     Route: 048
     Dates: end: 20180630

REACTIONS (2)
  - Hyponatraemia [Recovering/Resolving]
  - Diarrhoea [Recovering/Resolving]

NARRATIVE: CASE EVENT DATE: 20180630
